FAERS Safety Report 18338628 (Version 1)
Quarter: 2020Q4

REPORT INFORMATION
  Report Type: Spontaneous
  Country: US (occurrence: US)
  Receive Date: 20201002
  Receipt Date: 20201002
  Transmission Date: 20210113
  Serious: No
  Sender: FDA-Public Use
  Company Number: US-SAREPTA THERAPEUTICS INC.-SRP2020-000729

PATIENT
  Age: 13 Year
  Sex: Male
  Weight: 54.88 kg

DRUGS (2)
  1. EXONDYS 51 [Suspect]
     Active Substance: ETEPLIRSEN
     Indication: MUSCULAR DYSTROPHY
     Dosage: 1700 MG, WEEKLY
     Route: 042
     Dates: start: 20170925
  2. EXONDYS 51 [Suspect]
     Active Substance: ETEPLIRSEN
     Dosage: 1470 MG, WEEKLY
     Route: 042

REACTIONS (2)
  - Product prescribing issue [Unknown]
  - Product dose omission issue [Unknown]

NARRATIVE: CASE EVENT DATE: 202004
